FAERS Safety Report 4444713-4 (Version None)
Quarter: 2004Q3

REPORT INFORMATION
  Report Type: 
  Country: None (occurrence: None)
  Receive Date: 20040902
  Receipt Date: 20040820
  Transmission Date: 20050211
  Serious: Yes (Hospitalization)
  Sender: FDA-Public Use
  Company Number: SUS1-2004-00501

PATIENT
  Age: 33 Year
  Sex: Female
  Weight: 105.2 kg

DRUGS (6)
  1. CARBATROL [Suspect]
     Indication: CONVULSION
     Dosage: 400 MG, 2X/DAY;BID,ORAL
     Route: 048
     Dates: start: 20020101
  2. DEPAKOTE [Suspect]
     Indication: CONVULSION
     Dosage: 1250MG, AM + HS, 1000MG IN PM, ORAL
     Route: 048
     Dates: start: 20020101
  3. PULMICORT [Concomitant]
  4. ALBUTEROL [Concomitant]
  5. IMITREX ^CERENEX^ (SUMATRIPTAN SUCCINATE) [Concomitant]
  6. STRATTERA [Concomitant]

REACTIONS (5)
  - ASTHENIA [None]
  - DIFFICULTY IN WALKING [None]
  - DRUG LEVEL INCREASED [None]
  - HEADACHE [None]
  - NAUSEA [None]
